FAERS Safety Report 6719833-1 (Version None)
Quarter: 2010Q2

REPORT INFORMATION
  Report Type: 
  Country: None (occurrence: None)
  Receive Date: 20100511
  Receipt Date: 20100428
  Transmission Date: 20101027
  Serious: Yes (Other)
  Sender: FDA-Public Use
  Company Number: PHHY2010DE05330

PATIENT
  Sex: Female

DRUGS (7)
  1. RASILEZ [Suspect]
     Dosage: 150 MG, BID
     Route: 048
     Dates: start: 20090101, end: 20100101
  2. RASILEZ [Suspect]
     Dosage: 300 MG PER DAY
     Route: 048
     Dates: start: 20100101
  3. RASILEZ [Suspect]
     Dosage: 150 MG PER DAY
     Route: 048
     Dates: start: 20100423
  4. RASILEZ HCT [Suspect]
     Dosage: 1 DF PER DAY
     Route: 048
     Dates: start: 20100101, end: 20100101
  5. RASILEZ HCT [Suspect]
     Dosage: UNK
  6. IRBESARTAN [Concomitant]
     Dosage: AS NEEDED ONE SINGLE DOSE
     Dates: start: 20090101
  7. CONCOR COR [Concomitant]
     Route: 065

REACTIONS (11)
  - ATRIAL FIBRILLATION [None]
  - BLOOD PRESSURE INADEQUATELY CONTROLLED [None]
  - CONSTIPATION [None]
  - DRUG INEFFECTIVE [None]
  - ERYTHEMA [None]
  - HEADACHE [None]
  - INTESTINAL MASS [None]
  - PAIN IN EXTREMITY [None]
  - POSTOPERATIVE THROMBOSIS [None]
  - PRURITUS [None]
  - RASH [None]
